FAERS Safety Report 6876770-X (Version None)
Quarter: 2010Q3

REPORT INFORMATION
  Report Type: 
  Country: None (occurrence: None)
  Receive Date: 20100727
  Receipt Date: 20100723
  Transmission Date: 20110219
  Serious: Yes (Hospitalization)
  Sender: FDA-Public Use
  Company Number: IT-ROCHE-694681

PATIENT
  Sex: Female

DRUGS (3)
  1. CLONAZEPAM [Suspect]
     Indication: DEPRESSION
     Dosage: FREQUENCY REPORTED AS TOTAL.
     Route: 048
     Dates: start: 20100225, end: 20100225
  2. TOLEP [Concomitant]
     Route: 048
  3. ALCOHOL [Concomitant]

REACTIONS (3)
  - ALCOHOL ABUSE [None]
  - DEPRESSION [None]
  - SYNCOPE [None]
